FAERS Safety Report 18352632 (Version 1)
Quarter: 2020Q4

REPORT INFORMATION
  Report Type: Spontaneous
  Country: US (occurrence: US)
  Receive Date: 20201006
  Receipt Date: 20201006
  Transmission Date: 20210114
  Serious: No
  Sender: FDA-Public Use
  Company Number: US-ALLERGAN-2008934US

PATIENT
  Sex: Female

DRUGS (10)
  1. LINZESS [Suspect]
     Active Substance: LINACLOTIDE
     Dosage: 290 ?G, QD
  2. CALCIUM [Concomitant]
     Active Substance: CALCIUM
  3. MULTIVITAMINS [Concomitant]
     Active Substance: VITAMINS
  4. LINZESS [Suspect]
     Active Substance: LINACLOTIDE
     Dosage: 145 ?G
  5. LINZESS [Suspect]
     Active Substance: LINACLOTIDE
     Dosage: BATCH STARTED A WEEK AND A HALF AGO
  6. IRON [Concomitant]
     Active Substance: IRON
  7. LINZESS [Suspect]
     Active Substance: LINACLOTIDE
     Indication: CONSTIPATION
     Dosage: 290 ?G, QD
  8. LINZESS [Suspect]
     Active Substance: LINACLOTIDE
     Dosage: 72 ?G
  9. DICLOFENAC [Concomitant]
     Active Substance: DICLOFENAC
     Indication: ARTHRALGIA
     Dosage: UNK, PRN
  10. CABERGOLINE. [Concomitant]
     Active Substance: CABERGOLINE
     Indication: PITUITARY TUMOUR
     Dosage: UNK, PRN WEEKLY
     Route: 048

REACTIONS (14)
  - Constipation [Not Recovered/Not Resolved]
  - Abdominal pain [Unknown]
  - Product storage error [Unknown]
  - Off label use [Unknown]
  - Regurgitation [Not Recovered/Not Resolved]
  - Nausea [Unknown]
  - Dysgeusia [Not Recovered/Not Resolved]
  - Product dispensing error [Unknown]
  - Vomiting [Not Recovered/Not Resolved]
  - Malaise [Recovered/Resolved]
  - Inappropriate schedule of product administration [Unknown]
  - Abdominal distension [Not Recovered/Not Resolved]
  - Drug ineffective [Unknown]
  - Product quality issue [Unknown]

NARRATIVE: CASE EVENT DATE: 202002
